FAERS Safety Report 6329118-3 (Version None)
Quarter: 2009Q3

REPORT INFORMATION
  Report Type: 
  Country: None (occurrence: None)
  Receive Date: 20090826
  Receipt Date: 20090813
  Transmission Date: 20100115
  Serious: Yes (Other)
  Sender: FDA-Public Use
  Company Number: US-ELI_LILLY_AND_COMPANY-US200908003206

PATIENT
  Age: 63 Year
  Sex: Female

DRUGS (8)
  1. CYMBALTA [Suspect]
     Dosage: 30 MG, 2/D
     Dates: end: 20090101
  2. CYMBALTA [Suspect]
     Dosage: 30 MG, 3/D
     Dates: start: 20090101
  3. OXYCONTIN [Concomitant]
     Dosage: 10 MG, UNK
  4. ADDERALL 10 [Concomitant]
  5. ENABLEX                            /01760401/ [Concomitant]
     Dosage: 15 MG, UNK
  6. MORPHINE SULFATE [Concomitant]
  7. NEURONTIN [Concomitant]
  8. XANAX [Concomitant]
     Dosage: 1 MG, UNK

REACTIONS (2)
  - ALANINE AMINOTRANSFERASE INCREASED [None]
  - ASPARTATE AMINOTRANSFERASE INCREASED [None]
